FAERS Safety Report 23451292 (Version 1)
Quarter: 2024Q1

REPORT INFORMATION
  Report Type: Spontaneous
  Country: US (occurrence: None)
  Receive Date: 20240126
  Receipt Date: 20240126
  Transmission Date: 20240410
  Serious: Yes (Hospitalization)
  Sender: FDA-Public Use
  Company Number: None

PATIENT
  Sex: Female

DRUGS (1)
  1. TOBRAMYCIN [Suspect]
     Active Substance: TOBRAMYCIN
     Indication: Product used for unknown indication
     Dosage: 1.1ML VIA NEBULIZER??TWICE DAILY FOR 28 DAYS ON, THEN 28 DAYS OFF?
     Route: 055
     Dates: start: 202310

REACTIONS (1)
  - Hospitalisation [None]
